FAERS Safety Report 8098258-3 (Version None)
Quarter: 2012Q1

REPORT INFORMATION
  Report Type: 
  Country: None (occurrence: None)
  Receive Date: 20120128
  Receipt Date: 20110719
  Transmission Date: 20120608
  Serious: No
  Sender: FDA-Public Use
  Company Number: US-ABBOTT-11P-163-0840273-00

PATIENT
  Sex: Male
  Weight: 104.42 kg

DRUGS (10)
  1. HUMIRA [Suspect]
     Indication: PSORIASIS
     Route: 058
     Dates: start: 20070101
  2. CLARITIN [Concomitant]
     Indication: SEASONAL ALLERGY
  3. PREDNISONE TAB [Concomitant]
     Indication: ARTHRITIS
  4. LISINOPRIL [Concomitant]
     Indication: HYPERTENSION
  5. HUMIRA [Suspect]
     Indication: PSORIATIC ARTHROPATHY
  6. RELAFEN [Concomitant]
     Indication: ARTHRITIS
  7. MULTI-VITAMIN [Concomitant]
     Indication: VITAMIN SUPPLEMENTATION
  8. ALLOPURINOL [Concomitant]
     Indication: BLOOD URIC ACID INCREASED
  9. RESPERADAL [Concomitant]
     Indication: PRODUCT USED FOR UNKNOWN INDICATION
  10. CRESTOR [Concomitant]
     Indication: BLOOD CHOLESTEROL INCREASED

REACTIONS (1)
  - COUGH [None]
